FAERS Safety Report 10982081 (Version 1)
Quarter: 2015Q2

REPORT INFORMATION
  Report Type: Spontaneous
  Country: CH (occurrence: CH)
  Receive Date: 20150403
  Receipt Date: 20150403
  Transmission Date: 20150821
  Serious: Yes (Hospitalization)
  Sender: FDA-Public Use
  Company Number: CH-009507513-1504CHE000789

PATIENT
  Age: 66 Year
  Sex: Female

DRUGS (24)
  1. LACRINORM [Concomitant]
     Active Substance: CARBOMER
  2. BEPANTHEN (DEXPANTHENOL) [Concomitant]
  3. EXCIPIAL MANDELOLBAD [Concomitant]
  4. LUBEX [Concomitant]
  5. CALCIMAGON [Concomitant]
     Active Substance: CALCIUM
  6. NOPIL [Concomitant]
     Active Substance: SULFAMETHOXAZOLE\TRIMETHOPRIM
  7. POTASSIUM CHLORIDE. [Concomitant]
     Active Substance: POTASSIUM CHLORIDE
  8. XARELTO [Concomitant]
     Active Substance: RIVAROXABAN
  9. MYFORTIC [Concomitant]
     Active Substance: MYCOPHENOLATE SODIUM
  10. CRESTOR [Concomitant]
     Active Substance: ROSUVASTATIN CALCIUM
  11. ELTROXIN [Concomitant]
     Active Substance: LEVOTHYROXINE
  12. SUPRADYN [Concomitant]
     Active Substance: ASCORBIC ACID\MINERALS\VITAMINS
  13. VALTREX [Concomitant]
     Active Substance: VALACYCLOVIR HYDROCHLORIDE
  14. MAGNESIUM (UNSPECIFIED) [Concomitant]
     Active Substance: MAGNESIUM
  15. URSOFALK [Concomitant]
     Active Substance: URSODIOL
  16. REMERON [Suspect]
     Active Substance: MIRTAZAPINE
     Indication: DEPRESSION
     Dosage: HALF TABLET/DAY
     Route: 048
     Dates: start: 2013, end: 201407
  17. PANTOZOL [Suspect]
     Active Substance: PANTOPRAZOLE SODIUM
     Indication: PROPHYLAXIS
     Dosage: 40 MG, QD
     Route: 048
     Dates: start: 201406, end: 201407
  18. OESTRO GYNAEDRON (CHLORPHENESIN (+) ETHINYL ESTRADIOL (+) SULFANILAMID [Concomitant]
  19. PREDNISONE. [Concomitant]
     Active Substance: PREDNISONE
  20. PROGRAF [Suspect]
     Active Substance: TACROLIMUS\TACROLIMUS ANHYDROUS
     Indication: CHRONIC GRAFT VERSUS HOST DISEASE
     Dosage: 1 MG, BID
     Route: 048
     Dates: start: 201405
  21. CONCOR [Concomitant]
     Active Substance: BISOPROLOL FUMARATE
  22. CREON [Concomitant]
     Active Substance: PANCRELIPASE AMYLASE\PANCRELIPASE LIPASE\PANCRELIPASE PROTEASE
  23. DIFLUCAN [Concomitant]
     Active Substance: FLUCONAZOLE
  24. METFORMIN [Concomitant]
     Active Substance: METFORMIN HYDROCHLORIDE

REACTIONS (2)
  - Inappropriate antidiuretic hormone secretion [Recovered/Resolved]
  - Hyponatraemia [Recovered/Resolved]

NARRATIVE: CASE EVENT DATE: 201407
